FAERS Safety Report 23692425 (Version 1)
Quarter: 2024Q2

REPORT INFORMATION
  Report Type: Report from Study
  Country: US (occurrence: US)
  Receive Date: 20240401
  Receipt Date: 20240401
  Transmission Date: 20240716
  Serious: Yes (Other)
  Sender: FDA-Public Use
  Company Number: US-ARGENX-2024-ARGX-US001072

PATIENT

DRUGS (1)
  1. VYVGART [Suspect]
     Active Substance: EFGARTIGIMOD ALFA-FCAB
     Indication: Myasthenia gravis
     Dosage: UNK
     Route: 042
     Dates: start: 20230628

REACTIONS (21)
  - Diabetes mellitus [Unknown]
  - Feeling abnormal [Unknown]
  - Feeling hot [Unknown]
  - Productive cough [Unknown]
  - Heart rate increased [Unknown]
  - Head discomfort [Unknown]
  - Lacrimation increased [Unknown]
  - Disturbance in attention [Unknown]
  - Dysuria [Unknown]
  - Vision blurred [Unknown]
  - Dyspnoea [Unknown]
  - Vomiting [Unknown]
  - Bladder disorder [Unknown]
  - Malaise [Unknown]
  - Fatigue [Not Recovered/Not Resolved]
  - Osteoporosis [Unknown]
  - Cough [Unknown]
  - Secretion discharge [Unknown]
  - Feeding disorder [Unknown]
  - Sleep disorder [Unknown]
  - Dyspnoea [Unknown]

NARRATIVE: CASE EVENT DATE: 20230628
